FAERS Safety Report 5907589-1 (Version None)
Quarter: 2008Q4

REPORT INFORMATION
  Report Type: 
  Country: None (occurrence: None)
  Receive Date: 20081003
  Receipt Date: 20080922
  Transmission Date: 20090506
  Serious: Yes (Hospitalization)
  Sender: FDA-Public Use
  Company Number: AU-MERCK-0809USA04128

PATIENT
  Age: 60 Year
  Sex: Female

DRUGS (25)
  1. DECADRON SRC [Suspect]
     Indication: NAUSEA
     Route: 048
  2. DECADRON SRC [Suspect]
     Route: 048
  3. DECADRON SRC [Suspect]
     Indication: VOMITING
     Route: 048
  4. DECADRON SRC [Suspect]
     Route: 048
  5. LEVOMEPROMAZINE [Concomitant]
     Indication: NAUSEA
     Route: 058
  6. LEVOMEPROMAZINE [Concomitant]
     Indication: VOMITING
     Route: 058
  7. METOCLOPRAMIDE [Concomitant]
     Indication: NAUSEA
     Route: 058
  8. METOCLOPRAMIDE [Concomitant]
     Route: 058
  9. METOCLOPRAMIDE [Concomitant]
     Indication: VOMITING
     Route: 058
  10. METOCLOPRAMIDE [Concomitant]
     Route: 058
  11. CYCLIZINE [Concomitant]
     Indication: NAUSEA
     Route: 048
  12. CYCLIZINE [Concomitant]
     Indication: VOMITING
     Route: 048
  13. OLANZAPINE [Concomitant]
     Indication: NAUSEA
     Route: 048
  14. OLANZAPINE [Concomitant]
     Indication: VOMITING
     Route: 048
  15. ESOMEPRAZOLE MAGNESIUM [Concomitant]
     Indication: NAUSEA
     Route: 048
  16. ESOMEPRAZOLE MAGNESIUM [Concomitant]
     Indication: VOMITING
     Route: 048
  17. LORAZEPAM [Concomitant]
     Indication: NAUSEA
     Route: 060
  18. LORAZEPAM [Concomitant]
     Indication: VOMITING
     Route: 060
  19. MIRTAZAPINE [Concomitant]
     Indication: NAUSEA
     Route: 048
  20. MIRTAZAPINE [Concomitant]
     Indication: VOMITING
     Route: 048
  21. CITALOPRAM [Concomitant]
     Route: 065
  22. MIDAZOLAM [Concomitant]
     Route: 058
  23. DECADRON [Suspect]
     Indication: NAUSEA
     Route: 058
  24. DECADRON [Suspect]
     Indication: VOMITING
     Route: 058
  25. ESOMEPRAZOLE MAGNESIUM [Concomitant]
     Route: 042

REACTIONS (4)
  - GASTRIC HAEMORRHAGE [None]
  - GASTRITIS [None]
  - NAUSEA [None]
  - VOMITING [None]
